FAERS Safety Report 4322646-1 (Version None)
Quarter: 2004Q1

REPORT INFORMATION
  Report Type: 
  Country: None (occurrence: None)
  Receive Date: 20040324
  Receipt Date: 20031209
  Transmission Date: 20041129
  Serious: No
  Sender: FDA-Public Use
  Company Number: US-BRISTOL-MYERS SQUIBB COMPANY-12453429

PATIENT
  Age: 43 Year
  Sex: Male
  Weight: 68 kg

DRUGS (4)
  1. SUSTIVA [Suspect]
     Indication: HIV INFECTION
     Route: 048
     Dates: start: 20031101
  2. REYATAZ [Suspect]
     Indication: HIV INFECTION
  3. NORVIR [Concomitant]
  4. EMTRIVA [Concomitant]

REACTIONS (2)
  - FEELING HOT [None]
  - RASH PRURITIC [None]
